FAERS Safety Report 5211960-3 (Version None)
Quarter: 2007Q1

REPORT INFORMATION
  Report Type: 
  Country: None (occurrence: None)
  Receive Date: 20070116
  Receipt Date: 20070116
  Transmission Date: 20070707
  Serious: Yes (Death)
  Sender: FDA-Public Use
  Company Number: None

PATIENT
  Age: 89 Year
  Sex: Male

DRUGS (8)
  1. XIGRIS [Suspect]
     Indication: LUNG INJURY
     Dosage: 24/UG/KG/HR FOR 96 HOUR
     Dates: start: 20061119, end: 20061123
  2. NIMBEX [Concomitant]
  3. FENTANYL TRANSDERMAL SYSTEM [Concomitant]
  4. MIDAZOLAM HYDROCHLORIDE [Concomitant]
  5. NOREPINEPHRINE BITARTRATE [Concomitant]
  6. VASOPRESSIN [Concomitant]
  7. DIFLUCIN [Concomitant]
  8. MEROPENEM [Concomitant]

REACTIONS (7)
  - DIALYSIS [None]
  - DISEASE PROGRESSION [None]
  - HAEMODYNAMIC INSTABILITY [None]
  - ORGAN FAILURE [None]
  - RENAL FAILURE [None]
  - RESPIRATORY FAILURE [None]
  - SEPSIS [None]
